FAERS Safety Report 5372455-X (Version None)
Quarter: 2007Q2

REPORT INFORMATION
  Report Type: 
  Country: None (occurrence: None)
  Receive Date: 20070625
  Receipt Date: 20070613
  Transmission Date: 20071010
  Serious: Yes (Hospitalization)
  Sender: FDA-Public Use
  Company Number: B0476092A

PATIENT
  Age: 27 Year
  Sex: Female

DRUGS (8)
  1. FLUTICASONE PROPIONATE UNSPECIFIED INHALER DEVICE  (GENERI) (FLUTICASO [Suspect]
     Dosage: INHALED
     Route: 055
  2. DIAZEPAM (FORMULATION UNKNOWN) (GENERIC) (DIAZEPAM) [Suspect]
     Dosage: 2 MG/SEE DOSAGE TEXT
  3. BACLOFEN (FORMULATION UNKNOWN) (BACLOFEN) [Suspect]
     Dosage: 40 MG / FOUR TIMES PER DAY
  4. CLONIDINE (FORMULATION UNKNOWN) (CLONIDINE) [Suspect]
     Dosage: .1 MG/ FOUR TIMES PER DAY
  5. METAXALONE [Suspect]
     Dosage: 800 MG / THREE TIMES PER DAY
  6. SERTRALINE (FORMULATION UNKNOWN) (SERTRALINE) [Suspect]
     Dosage: 100 MG PER DAY
  7. TRAZODONE HCL [Suspect]
     Dosage: 50 MG / AT NIGHT
  8. ETHANOL (FORMULATION UNKNOWN) (ALCOHOL) [Suspect]

REACTIONS (4)
  - ACCIDENTAL OVERDOSE [None]
  - ALCOHOL USE [None]
  - MUSCLE SPASMS [None]
  - SOMNOLENCE [None]
